FAERS Safety Report 19350355 (Version 1)
Quarter: 2021Q2

REPORT INFORMATION
  Report Type: Spontaneous
  Country: US (occurrence: US)
  Receive Date: 20210531
  Receipt Date: 20210531
  Transmission Date: 20210717
  Serious: Yes (Hospitalization)
  Sender: FDA-Public Use
  Company Number: None

PATIENT
  Age: 74 Year
  Sex: Male

DRUGS (1)
  1. ESBRIET [Suspect]
     Active Substance: PIRFENIDONE
     Indication: IDIOPATHIC PULMONARY FIBROSIS
     Dosage: ?          OTHER DOSE:267/534 DF;OTHER FREQUENCY:QD 1?7/8?14;?
     Route: 048
     Dates: start: 20201128

REACTIONS (5)
  - Diarrhoea [None]
  - Abdominal pain upper [None]
  - Dyspnoea [None]
  - Nausea [None]
  - Infection [None]

NARRATIVE: CASE EVENT DATE: 20210526
